FAERS Safety Report 21285554 (Version 1)
Quarter: 2022Q3

REPORT INFORMATION
  Report Type: Spontaneous
  Country: US (occurrence: None)
  Receive Date: 20220901
  Receipt Date: 20220901
  Transmission Date: 20221027
  Serious: Yes (unspecified)
  Sender: FDA-Public Use
  Company Number: None

PATIENT
  Age: 85 Year
  Sex: Male
  Weight: 86.18 kg

DRUGS (20)
  1. COLESTIPOL HYDROCHLORIDE [Suspect]
     Active Substance: COLESTIPOL HYDROCHLORIDE
     Indication: Product used for unknown indication
     Dosage: FREQUENCY : TWICE A DAY;?QUANTITY: 60
     Route: 048
     Dates: start: 20220901, end: 20220901
  2. AMLODIPINE BESYLATE [Concomitant]
     Active Substance: AMLODIPINE BESYLATE
  3. METOPROLOL SUCCINATE [Concomitant]
     Active Substance: METOPROLOL SUCCINATE
  4. AMIODARONE HYDROCHLORIDE [Concomitant]
     Active Substance: AMIODARONE HYDROCHLORIDE
  5. DOXYCYCLINE HYCLATE [Concomitant]
     Active Substance: DOXYCYCLINE HYCLATE
  6. APIXABAN [Concomitant]
     Active Substance: APIXABAN
  7. VIBRAMYCIN [Concomitant]
     Active Substance: DOXYCYCLINE
  8. ZOLPIDEM TARTRATE [Concomitant]
  9. ALPRAZOLAM [Concomitant]
     Active Substance: ALPRAZOLAM
  10. LOPERAMIDE [Concomitant]
     Active Substance: LOPERAMIDE
  11. SULFASALAZINE [Concomitant]
     Active Substance: SULFASALAZINE
  12. COLESTIPOL HYDROCHLORIDE [Concomitant]
     Active Substance: COLESTIPOL HYDROCHLORIDE
  13. LISINOPRIL [Concomitant]
     Active Substance: LISINOPRIL
  14. SPIRONOLACTONE [Concomitant]
     Active Substance: SPIRONOLACTONE
  15. PROTONIX [Concomitant]
     Active Substance: PANTOPRAZOLE SODIUM
  16. ATORVASTATIN CALCIUM [Concomitant]
     Active Substance: ATORVASTATIN CALCIUM
  17. NITROGLYCERIN [Concomitant]
     Active Substance: NITROGLYCERIN
  18. SYNTHROID [Concomitant]
     Active Substance: LEVOTHYROXINE SODIUM
  19. ASPIRIN [Concomitant]
     Active Substance: ASPIRIN
  20. VITAMINS [Concomitant]
     Active Substance: VITAMINS

REACTIONS (4)
  - Product substitution issue [None]
  - Product physical issue [None]
  - Product use complaint [None]
  - Product quality issue [None]

NARRATIVE: CASE EVENT DATE: 20220901
